FAERS Safety Report 11682627 (Version 1)
Quarter: 2015Q4

REPORT INFORMATION
  Report Type: Spontaneous
  Country: US (occurrence: US)
  Receive Date: 20151029
  Receipt Date: 20151029
  Transmission Date: 20160304
  Serious: Yes (Death)
  Sender: FDA-Public Use
  Company Number: US-PFIZER INC-2015350442

PATIENT
  Age: 62 Year
  Sex: Female

DRUGS (1)
  1. NEUMEGA [Suspect]
     Active Substance: OPRELVEKIN
     Dosage: UNK

REACTIONS (3)
  - Ovarian cancer [Fatal]
  - Condition aggravated [Fatal]
  - Weight decreased [Unknown]
